FAERS Safety Report 8170483-2 (Version None)
Quarter: 2012Q1

REPORT INFORMATION
  Report Type: 
  Country: None (occurrence: None)
  Receive Date: 20120228
  Receipt Date: 20120221
  Transmission Date: 20120608
  Serious: Yes (Other)
  Sender: FDA-Public Use
  Company Number: US-AMGEN-USASP2012006540

PATIENT
  Age: 36 Year
  Sex: Female

DRUGS (1)
  1. ENBREL [Suspect]
     Indication: PRODUCT USED FOR UNKNOWN INDICATION
     Dosage: 50 MG, QWK
     Route: 058
     Dates: start: 20050101

REACTIONS (6)
  - PYREXIA [None]
  - ACNE [None]
  - DRUG DEPENDENCE [None]
  - MALAISE [None]
  - RED BLOOD CELL SEDIMENTATION RATE INCREASED [None]
  - PAIN [None]
